FAERS Safety Report 10248303 (Version 1)
Quarter: 2014Q2

REPORT INFORMATION
  Report Type: Spontaneous
  Country: DE (occurrence: DE)
  Receive Date: 20140620
  Receipt Date: 20140620
  Transmission Date: 20141212
  Serious: Yes (Hospitalization)
  Sender: FDA-Public Use
  Company Number: DE-UCBSA-2014002389

PATIENT
  Sex: Male
  Weight: 80 kg

DRUGS (1)
  1. LEVETIRACETAM UCB [Suspect]
     Dosage: 1000 MG, 2X/DAY (BID)
     Route: 048

REACTIONS (1)
  - Respiratory depression [Not Recovered/Not Resolved]
